FAERS Safety Report 25817052 (Version 1)
Quarter: 2025Q3

REPORT INFORMATION
  Report Type: Spontaneous
  Country: RU (occurrence: RU)
  Receive Date: 20250918
  Receipt Date: 20250918
  Transmission Date: 20251020
  Serious: Yes (Hospitalization, Other)
  Sender: AMGEN
  Company Number: RU-AMGEN-RUSSP2025181085

PATIENT
  Age: 84 Year
  Sex: Female

DRUGS (4)
  1. PROLIA [Suspect]
     Active Substance: DENOSUMAB
     Indication: Hyperparathyroidism secondary
     Route: 065
  2. PROLIA [Suspect]
     Active Substance: DENOSUMAB
     Route: 065
  3. ALFACALCIDOL [Concomitant]
     Active Substance: ALFACALCIDOL
     Indication: Hyperparathyroidism secondary
  4. ALFACALCIDOL [Concomitant]
     Active Substance: ALFACALCIDOL
     Dosage: 0.5 MICROGRAM, QD

REACTIONS (13)
  - Hypercalcaemia [Unknown]
  - Hyperchromic anaemia [Unknown]
  - Proteinuria [Unknown]
  - Renal cyst [Unknown]
  - Encephalopathy [Unknown]
  - Parathyroid tumour benign [Unknown]
  - Peripheral swelling [Unknown]
  - Product dose omission issue [Unknown]
  - Off label use [Unknown]
  - Glomerular filtration rate decreased [Unknown]
  - Drug withdrawal syndrome [Unknown]
  - Blood parathyroid hormone increased [Unknown]
  - Parathyroid hyperplasia [Unknown]

NARRATIVE: CASE EVENT DATE: 20220101
